FAERS Safety Report 8049612-7 (Version None)
Quarter: 2012Q1

REPORT INFORMATION
  Report Type: 
  Country: None (occurrence: None)
  Receive Date: 20120117
  Receipt Date: 20120111
  Transmission Date: 20120608
  Serious: Yes (Other)
  Sender: FDA-Public Use
  Company Number: US-PFIZER INC-2012009337

PATIENT
  Sex: Female

DRUGS (1)
  1. CHANTIX [Suspect]
     Dosage: UNK

REACTIONS (10)
  - MANIA [None]
  - CHRONIC OBSTRUCTIVE PULMONARY DISEASE [None]
  - NERVOUS SYSTEM DISORDER [None]
  - EMOTIONAL DISORDER [None]
  - SUICIDAL IDEATION [None]
  - BIPOLAR DISORDER [None]
  - FEELING ABNORMAL [None]
  - INSOMNIA [None]
  - ABNORMAL DREAMS [None]
  - ABNORMAL BEHAVIOUR [None]
